FAERS Safety Report 21835782 (Version 1)
Quarter: 2023Q1

REPORT INFORMATION
  Report Type: Report from Study
  Country: US (occurrence: US)
  Receive Date: 20230109
  Receipt Date: 20230109
  Transmission Date: 20230418
  Serious: Yes (Other)
  Sender: FDA-Public Use
  Company Number: US-ABBVIE-4260386

PATIENT
  Age: 59 Year
  Sex: Female

DRUGS (2)
  1. RINVOQ [Suspect]
     Active Substance: UPADACITINIB
     Indication: Rheumatoid arthritis
     Route: 048
     Dates: start: 20220104, end: 20221107
  2. RINVOQ [Suspect]
     Active Substance: UPADACITINIB
     Indication: Rheumatoid arthritis
     Dosage: FIRST ADMIN DATE : 2022 NOV
     Route: 048

REACTIONS (5)
  - Ocular hyperaemia [Unknown]
  - Periorbital swelling [Unknown]
  - Eye haemorrhage [Unknown]
  - Pain in extremity [Unknown]
  - Rosacea [Unknown]

NARRATIVE: CASE EVENT DATE: 20220104
